FAERS Safety Report 6669077-7 (Version None)
Quarter: 2010Q2

REPORT INFORMATION
  Report Type: 
  Country: None (occurrence: None)
  Receive Date: 20100406
  Receipt Date: 20100331
  Transmission Date: 20101027
  Serious: Yes (Other)
  Sender: FDA-Public Use
  Company Number: A0852915A

PATIENT
  Age: 69 Year
  Sex: Male

DRUGS (1)
  1. ARZERRA [Suspect]
     Route: 042
     Dates: start: 20100220

REACTIONS (3)
  - ANAEMIA [None]
  - DYSPNOEA [None]
  - OXYGEN SATURATION DECREASED [None]
